FAERS Safety Report 6103421-4 (Version None)
Quarter: 2009Q1

REPORT INFORMATION
  Report Type: 
  Country: None (occurrence: None)
  Receive Date: 20090305
  Receipt Date: 20090224
  Transmission Date: 20090719
  Serious: Yes (Hospitalization)
  Sender: FDA-Public Use
  Company Number: PHHY2009JP01159

PATIENT
  Sex: Male

DRUGS (14)
  1. TEGRETOL [Suspect]
     Indication: COMPLEX PARTIAL SEIZURES
     Dosage: UNK
     Dates: start: 20040801, end: 20050801
  2. TEGRETOL [Suspect]
     Dosage: 200 MG DAILY
     Route: 048
     Dates: start: 20051130, end: 20051221
  3. LITHIUM CARBONATE [Concomitant]
  4. ZONISAMIDE [Concomitant]
     Dosage: 200MG
  5. ZONISAMIDE [Concomitant]
     Dosage: 100MG
  6. CLONAZEPAM [Concomitant]
     Dosage: 8MG
  7. ALEVIATIN [Concomitant]
  8. VALPROATE SODIUM [Concomitant]
     Dosage: 600MG
  9. VALPROIC ACID [Concomitant]
  10. CLOBAZAM [Concomitant]
  11. EXCEGRAN [Concomitant]
     Indication: COMPLEX PARTIAL SEIZURES
     Dosage: 200 MG
     Route: 048
  12. EXCEGRAN [Concomitant]
     Dosage: 100 MG
     Route: 048
  13. EXCEGRAN [Concomitant]
     Dosage: 350 MG
     Route: 048
     Dates: start: 20050801
  14. MYSLEE [Concomitant]
     Indication: INSOMNIA
     Dosage: 5 MG
     Route: 048
     Dates: start: 20050928, end: 20060118

REACTIONS (9)
  - DIZZINESS [None]
  - INAPPROPRIATE AFFECT [None]
  - IRRITABILITY [None]
  - LOGORRHOEA [None]
  - MANIA [None]
  - NAUSEA [None]
  - SALIVARY HYPERSECRETION [None]
  - SENSORY DISTURBANCE [None]
  - SLEEP DISORDER [None]
